FAERS Safety Report 9530651 (Version 1)
Quarter: 2013Q3

REPORT INFORMATION
  Report Type: Spontaneous
  Country: GB (occurrence: GB)
  Receive Date: 20130918
  Receipt Date: 20130918
  Transmission Date: 20140515
  Serious: Yes (Other)
  Sender: FDA-Public Use
  Company Number: GB-ROCHE-1274888

PATIENT
  Age: 21 Year
  Sex: Female

DRUGS (7)
  1. CLONAZEPAM [Suspect]
     Indication: DYSTONIA
     Route: 065
  2. ETONOGESTREL [Interacting]
     Indication: CONTRACEPTION
     Route: 059
     Dates: start: 20120401, end: 20130830
  3. GABAPENTIN [Concomitant]
     Indication: DYSTONIA
  4. MIRTAZAPINE [Concomitant]
     Indication: DYSTONIA
  5. NORTRIPTYLINE [Concomitant]
     Indication: DYSTONIA
  6. PROPRANOLOL [Concomitant]
     Indication: DYSTONIA
  7. TRAMADOL [Concomitant]
     Indication: DYSTONIA

REACTIONS (3)
  - Drug interaction [Unknown]
  - Abortion spontaneous [Unknown]
  - Pregnancy on contraceptive [Unknown]
